FAERS Safety Report 21740957 (Version 4)
Quarter: 2023Q2

REPORT INFORMATION
  Report Type: Spontaneous
  Country: US (occurrence: US)
  Receive Date: 20221216
  Receipt Date: 20230406
  Transmission Date: 20230721
  Serious: No
  Sender: FDA-Public Use
  Company Number: US-PFIZER INC-PV202200122919

PATIENT
  Age: 22 Year
  Sex: Female

DRUGS (1)
  1. GENOTROPIN [Suspect]
     Active Substance: SOMATROPIN
     Dosage: 1 MG
     Dates: start: 2022

REACTIONS (3)
  - Drug dose omission by device [Unknown]
  - Device operational issue [Unknown]
  - Device issue [Unknown]

NARRATIVE: CASE EVENT DATE: 20221201
